FAERS Safety Report 22753316 (Version 2)
Quarter: 2023Q4

REPORT INFORMATION
  Report Type: Spontaneous
  Country: US (occurrence: US)
  Receive Date: 20230726
  Receipt Date: 20231206
  Transmission Date: 20240110
  Serious: No
  Sender: FDA-Public Use
  Company Number: US-PFIZER INC-PV202300125506

PATIENT
  Age: 61 Year
  Sex: Female

DRUGS (2)
  1. LORBRENA [Suspect]
     Active Substance: LORLATINIB
     Dosage: 100 MG
     Route: 048
  2. LORBRENA [Suspect]
     Active Substance: LORLATINIB
     Dosage: 75 MG, DAILY (TAKE WHOLE WITH WATER, WITH OR WITHOUT FOOD AT THE SAME TIME EACH DAY.QUANTITY: 90, DA
     Route: 048

REACTIONS (1)
  - Swelling [Unknown]
